FAERS Safety Report 5566453-0 (Version None)
Quarter: 2007Q4

REPORT INFORMATION
  Report Type: 
  Country: None (occurrence: None)
  Receive Date: 20071219
  Receipt Date: 20071212
  Transmission Date: 20080405
  Serious: Yes (Other)
  Sender: FDA-Public Use
  Company Number: US-ASTRAZENECA-2007UW28355

PATIENT
  Age: 46 Year
  Sex: Female

DRUGS (5)
  1. NEXIUM [Suspect]
     Indication: GASTROOESOPHAGEAL REFLUX DISEASE
     Route: 048
     Dates: start: 20050101
  2. GLUCOPHAGE [Concomitant]
  3. SINGULAIR [Concomitant]
  4. QUINAPRIL HCL [Concomitant]
  5. MAXZIDE [Concomitant]
     Dosage: 75/50

REACTIONS (2)
  - MALIGNANT MELANOMA STAGE I [None]
  - THYROID CANCER [None]
